FAERS Safety Report 15768928 (Version 1)
Quarter: 2018Q4

REPORT INFORMATION
  Report Type: Spontaneous
  Country: CN (occurrence: CN)
  Receive Date: 20181228
  Receipt Date: 20181228
  Transmission Date: 20190205
  Serious: Yes (Death)
  Sender: FDA-Public Use
  Company Number: CN-ROCHE-2234909

PATIENT
  Age: 8 Year
  Sex: Male

DRUGS (4)
  1. METHOTREXATE. [Concomitant]
     Active Substance: METHOTREXATE
     Indication: JUVENILE IDIOPATHIC ARTHRITIS
     Route: 065
     Dates: start: 20170130, end: 20170404
  2. ACTEMRA [Suspect]
     Active Substance: TOCILIZUMAB
     Indication: JUVENILE IDIOPATHIC ARTHRITIS
     Route: 042
     Dates: start: 20170209
  3. NAPROXEN. [Concomitant]
     Active Substance: NAPROXEN
     Indication: JUVENILE IDIOPATHIC ARTHRITIS
     Route: 048
     Dates: start: 20170126, end: 20170404
  4. FOLIC ACID. [Concomitant]
     Active Substance: FOLIC ACID
     Indication: JUVENILE IDIOPATHIC ARTHRITIS
     Route: 065
     Dates: start: 20170130, end: 20170404

REACTIONS (5)
  - Juvenile idiopathic arthritis [Fatal]
  - Altered state of consciousness [Fatal]
  - Cardio-respiratory arrest [Fatal]
  - Dysphoria [Fatal]
  - Acute lymphocytic leukaemia [Fatal]

NARRATIVE: CASE EVENT DATE: 20170404
